FAERS Safety Report 16359755 (Version 2)
Quarter: 2019Q2

REPORT INFORMATION
  Report Type: Spontaneous
  Country: US (occurrence: US)
  Receive Date: 20190528
  Receipt Date: 20190627
  Transmission Date: 20190711
  Serious: Yes (Other)
  Sender: FDA-Public Use
  Company Number: US-ROCHE-2324809

PATIENT
  Age: 52 Year
  Sex: Female
  Weight: 87.17 kg

DRUGS (2)
  1. OCREVUS [Suspect]
     Active Substance: OCRELIZUMAB
     Indication: PRIMARY PROGRESSIVE MULTIPLE SCLEROSIS
     Dosage: INJ 300/10ML; INFUSION
     Route: 042
     Dates: start: 20190501, end: 20190501
  2. OCREVUS [Suspect]
     Active Substance: OCRELIZUMAB
     Dosage: INJ 300/10ML; INFUSION,?SUBSEQUENT DOSES: 13/APR/2019,12/NOV/2018
     Route: 042
     Dates: start: 201810, end: 201904

REACTIONS (2)
  - Fall [Unknown]
  - Gait disturbance [Not Recovered/Not Resolved]

NARRATIVE: CASE EVENT DATE: 201904
